FAERS Safety Report 18922767 (Version 1)
Quarter: 2021Q1

REPORT INFORMATION
  Report Type: Spontaneous
  Country: US (occurrence: US)
  Receive Date: 20210222
  Receipt Date: 20210222
  Transmission Date: 20210420
  Serious: Yes (Other)
  Sender: FDA-Public Use
  Company Number: None

PATIENT
  Sex: Female

DRUGS (2)
  1. MIRALAX [Suspect]
     Active Substance: POLYETHYLENE GLYCOL 3350
     Indication: COVID-19 IMMUNISATION
  2. COVID?19 VACCINE NOS. [Suspect]
     Active Substance: COVID-19 VACCINE NOS

REACTIONS (5)
  - Product formulation issue [None]
  - Vaccination complication [None]
  - Pyrexia [None]
  - Diarrhoea [None]
  - Peripheral swelling [None]

NARRATIVE: CASE EVENT DATE: 20210212
